FAERS Safety Report 18151928 (Version 2)
Quarter: 2021Q1

REPORT INFORMATION
  Report Type: Spontaneous
  Country: US (occurrence: US)
  Receive Date: 20200814
  Receipt Date: 20210121
  Transmission Date: 20210419
  Serious: Yes (Hospitalization, Other)
  Sender: FDA-Public Use
  Company Number: US-PURDUE-USA-2020-0161037

PATIENT
  Sex: Male

DRUGS (3)
  1. PERCOCET                           /00446701/ [Suspect]
     Active Substance: ACETAMINOPHEN\OXYCODONE HYDROCHLORIDE\OXYCODONE TEREPHTHALATE
     Indication: ORAL SURGERY
     Dosage: UNK
     Route: 065
     Dates: start: 201508
  2. PERCOCET                           /00446701/ [Suspect]
     Active Substance: ACETAMINOPHEN\OXYCODONE HYDROCHLORIDE\OXYCODONE TEREPHTHALATE
     Indication: PNEUMOTHORAX
  3. OXYCONTIN [Suspect]
     Active Substance: OXYCODONE HYDROCHLORIDE
     Indication: PNEUMOTHORAX
     Dosage: UNK
     Route: 048
     Dates: start: 201412

REACTIONS (5)
  - Constipation [Unknown]
  - Hernia repair [Unknown]
  - Drug dependence [Recovered/Resolved]
  - Road traffic accident [Unknown]
  - Dental implantation [Unknown]

NARRATIVE: CASE EVENT DATE: 201412
